FAERS Safety Report 16049791 (Version 1)
Quarter: 2019Q1

REPORT INFORMATION
  Report Type: Spontaneous
  Country: JP (occurrence: JP)
  Receive Date: 20190307
  Receipt Date: 20190307
  Transmission Date: 20190418
  Serious: Yes (Life-Threatening, Hospitalization, Other)
  Sender: FDA-Public Use
  Company Number: JP-PFIZER INC-2018467861

PATIENT
  Age: 68 Year
  Sex: Male
  Weight: 49 kg

DRUGS (3)
  1. RIMATIL [Concomitant]
     Active Substance: BUCILLAMINE
     Indication: RHEUMATOID ARTHRITIS
     Dosage: 100 MG, 1X/DAY
     Route: 048
     Dates: start: 20170425, end: 20181009
  2. XELJANZ [Suspect]
     Active Substance: TOFACITINIB CITRATE
     Indication: RHEUMATOID ARTHRITIS
     Dosage: 5 MG, 2X/DAY
     Route: 048
     Dates: start: 20171212, end: 20181009
  3. CELECOX [Concomitant]
     Active Substance: CELECOXIB
     Indication: RHEUMATOID ARTHRITIS
     Dosage: 200 MG, 2X/DAY
     Route: 048
     Dates: end: 20181009

REACTIONS (9)
  - Renal impairment [Unknown]
  - Prostate cancer metastatic [Recovering/Resolving]
  - Back pain [Unknown]
  - Malaise [Unknown]
  - Bone cancer metastatic [Recovering/Resolving]
  - Platelet count decreased [Unknown]
  - Hepatic function abnormal [Unknown]
  - Hydronephrosis [Unknown]
  - Pyrexia [Unknown]

NARRATIVE: CASE EVENT DATE: 20181009
